FAERS Safety Report 24586641 (Version 2)
Quarter: 2024Q4

REPORT INFORMATION
  Report Type: Spontaneous
  Country: US (occurrence: US)
  Receive Date: 20241107
  Receipt Date: 20241112
  Transmission Date: 20250115
  Serious: No
  Sender: ROCHE
  Company Number: US-ROCHE-10000124233

PATIENT
  Age: 61 Year
  Sex: Male

DRUGS (1)
  1. ACTEMRA ACTPEN [Suspect]
     Active Substance: TOCILIZUMAB
     Indication: Rheumatoid arthritis
     Route: 058

REACTIONS (6)
  - Device malfunction [Unknown]
  - Needle issue [Unknown]
  - No adverse event [Unknown]
  - Product dose omission issue [Unknown]
  - Pain [Unknown]
  - Device issue [Unknown]

NARRATIVE: CASE EVENT DATE: 20241029
